FAERS Safety Report 6925619-5 (Version None)
Quarter: 2010Q3

REPORT INFORMATION
  Report Type: 
  Country: None (occurrence: None)
  Receive Date: 20100816
  Receipt Date: 20100802
  Transmission Date: 20110219
  Serious: Yes (Death)
  Sender: FDA-Public Use
  Company Number: GB-GENENTECH-305154

PATIENT
  Sex: Female

DRUGS (4)
  1. RITUXIMAB [Suspect]
     Indication: MICROSCOPIC POLYANGIITIS
     Dosage: 375 MG/M2, UNK
     Route: 042
     Dates: start: 20061025
  2. CYCLOPHOSPHAMIDE [Suspect]
     Indication: MICROSCOPIC POLYANGIITIS
     Dosage: 15 MG/KG, UNK
     Route: 042
  3. METHYLPREDNISOLONE [Concomitant]
     Indication: PRODUCT USED FOR UNKNOWN INDICATION
     Dosage: 2 G, UNK
     Route: 042
  4. METHYLPREDNISOLONE [Concomitant]
     Dosage: 1 G, UNK
     Route: 050

REACTIONS (6)
  - GASTROINTESTINAL DISORDER [None]
  - LIGAMENT DISORDER [None]
  - OVARIAN CANCER [None]
  - PELVIC MASS [None]
  - PLEURAL EFFUSION [None]
  - SPLEEN DISORDER [None]
